FAERS Safety Report 18728579 (Version 2)
Quarter: 2021Q1

REPORT INFORMATION
  Report Type: Spontaneous
  Country: US (occurrence: US)
  Receive Date: 20210112
  Receipt Date: 20210204
  Transmission Date: 20210419
  Serious: Yes (Hospitalization)
  Sender: FDA-Public Use
  Company Number: US-TEVA-2020-US-1865156

PATIENT
  Age: 45 Year
  Sex: Female

DRUGS (1)
  1. CLOZAPINE. [Suspect]
     Active Substance: CLOZAPINE
     Indication: SCHIZOPHRENIA
     Dosage: INITIAL DOSE NOT STATED; LATER, REDUCED BY 50% AND THEN INCREASED
     Route: 065

REACTIONS (3)
  - Drug interaction [Unknown]
  - Delusion [Unknown]
  - Drug level below therapeutic [Unknown]
